FAERS Safety Report 8474258-6 (Version None)
Quarter: 2012Q2

REPORT INFORMATION
  Report Type: 
  Country: None (occurrence: None)
  Receive Date: 20120622
  Receipt Date: 20120622
  Transmission Date: 20120825
  Serious: Yes (Life-Threatening, Hospitalization)
  Sender: FDA-Public Use
  Company Number: None

PATIENT
  Age: 44 Year
  Sex: Female
  Weight: 91.5 kg

DRUGS (30)
  1. METHYLPREDNISOLONE [Concomitant]
  2. PROMETHAZINE [Concomitant]
  3. VENTOLIN HFA [Concomitant]
  4. ACETAMINOPHEN [Concomitant]
  5. SIMVASTATIN [Concomitant]
  6. CARVEDILOL [Concomitant]
  7. EPINEPHRINE [Concomitant]
  8. DIAZEPAM [Concomitant]
  9. DEXAMETHASONE SODIUM PHOSPHATE [Concomitant]
  10. ZOLPIDEM [Concomitant]
  11. TRAMADOL HCL [Concomitant]
  12. CARBOPLATIN [Suspect]
     Indication: LUNG CANCER METASTATIC
     Dosage: 385 MG Q 3 WEEKS IV DRIP
     Route: 041
     Dates: start: 20120312, end: 20120530
  13. FOSAPREPITANT DIMEGLUMINE [Concomitant]
  14. DIPHENHYDRAMINE HCL [Concomitant]
  15. HYDROCORTISONE [Concomitant]
  16. LEVOTHYROXINE SODIUM [Concomitant]
  17. OXYBUTYNIN [Concomitant]
  18. ALBUTEROL [Concomitant]
  19. LISINOPRIL [Concomitant]
  20. PALONOSETRON/DEXAMETHASONE [Concomitant]
  21. HOME MEDS [Concomitant]
  22. BEVACIZUMAB [Concomitant]
  23. CYANOCOBALAMIN [Concomitant]
  24. PERCOCET [Concomitant]
  25. PEMETREXED [Concomitant]
  26. HEPARIN LOCK-FLUSH [Concomitant]
  27. LORAZEPAM [Concomitant]
  28. VITAMIN D [Concomitant]
  29. RANITIDINE [Concomitant]
  30. PAROXETINE [Concomitant]

REACTIONS (4)
  - CHEST DISCOMFORT [None]
  - RASH ERYTHEMATOUS [None]
  - DYSPNOEA [None]
  - RESPIRATORY ARREST [None]
